FAERS Safety Report 4589748-6 (Version None)
Quarter: 2005Q1

REPORT INFORMATION
  Report Type: 
  Country: None (occurrence: None)
  Receive Date: 20050217
  Receipt Date: 20050204
  Transmission Date: 20050727
  Serious: Yes (Death)
  Sender: FDA-Public Use
  Company Number: MAG-2005-0000335

PATIENT
  Age: 71 Year
  Sex: Male

DRUGS (7)
  1. MORPHINE SULFATE [Suspect]
     Dosage: 20 MG, DAILY, ORAL; 30 MG, DAILY, ORAL
     Route: 048
  2. BETAMETHASONE [Suspect]
     Indication: NAUSEA
     Dosage: 3 MG, DAILY, ORAL; 5 MG, DAILY, ORAL
     Route: 048
  3. VOLTAREN [Suspect]
     Indication: CANCER PAIN
     Dosage: 75 MG, DAILY
  4. LOPERAMIDE HCL [Suspect]
     Indication: DIARRHOEA
     Dosage: 2 MG, DAILY
  5. CPT-11 (IRINOTECAN) [Concomitant]
  6. CISPLATIN [Concomitant]
  7. ILANGE-SHASHIN-TO [Concomitant]

REACTIONS (8)
  - CONSTIPATION [None]
  - DUODENAL PERFORATION [None]
  - DUODENAL ULCER [None]
  - GASTROINTESTINAL MOTILITY DISORDER [None]
  - LEUKOPENIA [None]
  - MALAISE [None]
  - NAUSEA [None]
  - PERITONITIS [None]
